FAERS Safety Report 14169203 (Version 3)
Quarter: 2018Q1

REPORT INFORMATION
  Report Type: Spontaneous
  Country: JP (occurrence: JP)
  Receive Date: 20171107
  Receipt Date: 20180326
  Transmission Date: 20180508
  Serious: Yes (Hospitalization)
  Sender: FDA-Public Use
  Company Number: JP-CELGENEUS-JPN-20171101451

PATIENT
  Age: 46 Year
  Sex: Male

DRUGS (8)
  1. OTEZLA [Suspect]
     Active Substance: APREMILAST
     Dosage: 20 MILLIGRAM
     Route: 048
     Dates: start: 20170616, end: 20170616
  2. OTEZLA [Suspect]
     Active Substance: APREMILAST
     Dosage: 60 MILLIGRAM
     Route: 048
     Dates: start: 20170620, end: 20171101
  3. XYZAL [Concomitant]
     Active Substance: LEVOCETIRIZINE DIHYDROCHLORIDE
     Indication: PSORIASIS
     Route: 065
     Dates: start: 20171019
  4. OTEZLA [Suspect]
     Active Substance: APREMILAST
     Dosage: 10MG/20MG
     Route: 048
     Dates: start: 20170617, end: 20170617
  5. OTEZLA [Suspect]
     Active Substance: APREMILAST
     Dosage: 40 MILLIGRAM
     Route: 048
     Dates: start: 20170618, end: 20170618
  6. OTEZLA [Suspect]
     Active Substance: APREMILAST
     Indication: PSORIASIS
     Dosage: 10 MILLIGRAM
     Route: 048
     Dates: start: 20170615, end: 20170615
  7. OTEZLA [Suspect]
     Active Substance: APREMILAST
     Dosage: 20MG/300MG
     Route: 048
     Dates: start: 20170619, end: 20170619
  8. EBASTEL [Concomitant]
     Active Substance: EBASTINE
     Indication: PSORIASIS
     Route: 065
     Dates: start: 20170218, end: 20171018

REACTIONS (3)
  - Gastric cancer [Unknown]
  - Folliculitis [Recovering/Resolving]
  - Palmoplantar keratoderma [Recovering/Resolving]

NARRATIVE: CASE EVENT DATE: 20170715
